FAERS Safety Report 16092977 (Version 1)
Quarter: 2019Q1

REPORT INFORMATION
  Report Type: Spontaneous
  Country: US (occurrence: US)
  Receive Date: 20190320
  Receipt Date: 20190320
  Transmission Date: 20190418
  Serious: Yes (Hospitalization)
  Sender: FDA-Public Use
  Company Number: US-STRIDES ARCOLAB LIMITED-2018SP008823

PATIENT
  Age: 16 Year
  Sex: Female

DRUGS (1)
  1. IBUPROFEN. [Suspect]
     Active Substance: IBUPROFEN
     Indication: HUMERUS FRACTURE
     Dosage: UNK
     Route: 065

REACTIONS (6)
  - Duodenal ulcer perforation [Recovered/Resolved]
  - Abdominal pain [Recovered/Resolved]
  - Vomiting [Recovered/Resolved]
  - Peritonitis [Recovered/Resolved]
  - Tenderness [Recovered/Resolved]
  - Abdominal rigidity [Recovered/Resolved]
